FAERS Safety Report 16477340 (Version 8)
Quarter: 2019Q3

REPORT INFORMATION
  Report Type: Report from Study
  Country: US (occurrence: US)
  Receive Date: 20190626
  Receipt Date: 20190904
  Transmission Date: 20191004
  Serious: Yes (Other)
  Sender: FDA-Public Use
  Company Number: US-GILEAD-2019-0415195

PATIENT
  Age: 63 Year
  Sex: Female

DRUGS (4)
  1. AMBRISENTAN [Suspect]
     Active Substance: AMBRISENTAN
     Indication: PRODUCT USED FOR UNKNOWN INDICATION
     Dosage: 5 MG, QD
     Route: 048
     Dates: start: 20090824
  2. SILDENAFIL. [Suspect]
     Active Substance: SILDENAFIL
     Indication: PRODUCT USED FOR UNKNOWN INDICATION
     Route: 065
  3. REVATIO [Concomitant]
     Active Substance: SILDENAFIL CITRATE
  4. OXYGEN. [Concomitant]
     Active Substance: OXYGEN

REACTIONS (26)
  - Cataract [Unknown]
  - Panic attack [Not Recovered/Not Resolved]
  - Cardiac disorder [Unknown]
  - Rotator cuff syndrome [Unknown]
  - Intervertebral disc protrusion [Unknown]
  - Feeding disorder [Not Recovered/Not Resolved]
  - Neoplasm malignant [Unknown]
  - Glaucoma [Not Recovered/Not Resolved]
  - Feeling abnormal [Not Recovered/Not Resolved]
  - Eating disorder [Not Recovered/Not Resolved]
  - Decreased appetite [Not Recovered/Not Resolved]
  - Renal neoplasm [Not Recovered/Not Resolved]
  - Gastroenteritis viral [Not Recovered/Not Resolved]
  - Herpes zoster [Unknown]
  - Dehydration [Not Recovered/Not Resolved]
  - Muscle spasms [Not Recovered/Not Resolved]
  - Deafness unilateral [Unknown]
  - Nausea [Not Recovered/Not Resolved]
  - Asthenia [Unknown]
  - Blindness [Unknown]
  - Weight increased [Unknown]
  - Alopecia [Not Recovered/Not Resolved]
  - Blood cholesterol abnormal [Unknown]
  - Eye operation [Unknown]
  - Hypoacusis [Not Recovered/Not Resolved]
  - Dyspnoea [Not Recovered/Not Resolved]
